FAERS Safety Report 5081808-9 (Version None)
Quarter: 2006Q3

REPORT INFORMATION
  Report Type: 
  Country: None (occurrence: None)
  Receive Date: 20060816
  Receipt Date: 20060810
  Transmission Date: 20061208
  Serious: Yes (Hospitalization)
  Sender: FDA-Public Use
  Company Number: ES-GLAXOSMITHKLINE-B0434054A

PATIENT
  Age: 32 Year
  Sex: Male

DRUGS (3)
  1. AUGMENTIN [Suspect]
     Indication: BACTERIAL INFECTION
     Route: 048
     Dates: start: 20060622, end: 20060625
  2. DICLOFENAC [Suspect]
     Dosage: 250MG THREE TIMES PER DAY
     Route: 048
     Dates: start: 20060622, end: 20060625
  3. ACETAMINOPHEN [Suspect]
     Route: 065
     Dates: start: 20060619, end: 20060625

REACTIONS (1)
  - HEPATITIS [None]
